FAERS Safety Report 8603326-0 (Version None)
Quarter: 2012Q3

REPORT INFORMATION
  Report Type: 
  Country: None (occurrence: None)
  Receive Date: 20120817
  Receipt Date: 20120816
  Transmission Date: 20120928
  Serious: Yes (Other)
  Sender: FDA-Public Use
  Company Number: PHHY2012AU037976

PATIENT
  Sex: Female

DRUGS (6)
  1. ZOLEDRONOC ACID [Suspect]
     Dosage: 5 MG,
     Route: 042
     Dates: start: 20120808
  2. HIPREX [Concomitant]
  3. INDAPAMIDE [Concomitant]
  4. SLOW-K [Concomitant]
     Dosage: UNK UKN, UNK
  5. ZOLEDRONOC ACID [Suspect]
     Indication: OSTEOPOROSIS
     Dosage: 5 MG
     Route: 042
     Dates: start: 20110415
  6. CARTIA XT [Concomitant]
     Dosage: UNK UKN, UNK

REACTIONS (7)
  - FALL [None]
  - PELVIC FRACTURE [None]
  - DISCOMFORT [None]
  - SPINAL FRACTURE [None]
  - RIB FRACTURE [None]
  - PAIN IN EXTREMITY [None]
  - PYREXIA [None]
